FAERS Safety Report 9155117 (Version 6)
Quarter: 2013Q2

REPORT INFORMATION
  Report Type: Report from Study
  Country: HU (occurrence: HU)
  Receive Date: 20130311
  Receipt Date: 20130518
  Transmission Date: 20140414
  Serious: Yes (Death, Hospitalization)
  Sender: FDA-Public Use
  Company Number: HU-ROCHE-1181399

PATIENT
  Sex: Male

DRUGS (4)
  1. XELODA [Suspect]
     Indication: GASTRIC CANCER
     Route: 048
     Dates: start: 20121120
  2. XELODA [Suspect]
     Route: 048
  3. XELODA [Suspect]
     Route: 048
     Dates: end: 20130303
  4. CISPLATIN [Concomitant]
     Route: 065
     Dates: end: 20130302

REACTIONS (7)
  - Asthenia [Not Recovered/Not Resolved]
  - Blood urea increased [Not Recovered/Not Resolved]
  - Blood creatinine increased [Not Recovered/Not Resolved]
  - Nausea [Not Recovered/Not Resolved]
  - Vomiting [Not Recovered/Not Resolved]
  - Dyspnoea [Unknown]
  - Disease progression [Fatal]
